FAERS Safety Report 16259950 (Version 1)
Quarter: 2019Q2

REPORT INFORMATION
  Report Type: Spontaneous
  Country: US (occurrence: US)
  Receive Date: 20190501
  Receipt Date: 20190501
  Transmission Date: 20190711
  Serious: No
  Sender: FDA-Public Use
  Company Number: US-SUNOVION-2019SUN001667

PATIENT
  Age: 71 Year
  Sex: Male

DRUGS (1)
  1. LATUDA [Suspect]
     Active Substance: LURASIDONE HYDROCHLORIDE
     Dosage: 20 MG
     Route: 048

REACTIONS (8)
  - Visual impairment [Unknown]
  - Back disorder [Unknown]
  - Anxiety [Unknown]
  - Depression [Unknown]
  - Nail discolouration [Unknown]
  - Contusion [Unknown]
  - Mental disorder [Unknown]
  - Memory impairment [Unknown]
